FAERS Safety Report 7530425-7 (Version None)
Quarter: 2011Q2

REPORT INFORMATION
  Report Type: 
  Country: None (occurrence: None)
  Receive Date: 20110607
  Receipt Date: 20110523
  Transmission Date: 20111010
  Serious: Yes (Hospitalization, Other)
  Sender: FDA-Public Use
  Company Number: US-BAYER-201041961NA

PATIENT
  Age: 50 Year
  Sex: Female
  Weight: 68 kg

DRUGS (1)
  1. YASMIN [Suspect]
     Indication: HORMONE REPLACEMENT THERAPY
     Route: 048
     Dates: start: 20050201, end: 20050501

REACTIONS (3)
  - PAIN [None]
  - PULMONARY EMBOLISM [None]
  - FEAR [None]
